FAERS Safety Report 5915791-8 (Version None)
Quarter: 2008Q4

REPORT INFORMATION
  Report Type: 
  Country: None (occurrence: None)
  Receive Date: 20081010
  Receipt Date: 20081002
  Transmission Date: 20090506
  Serious: Yes (Other)
  Sender: FDA-Public Use
  Company Number: GB-ASTRAZENECA-2008GB01857

PATIENT
  Age: 70 Year
  Sex: Female

DRUGS (4)
  1. ATENOLOL [Suspect]
     Indication: BLOOD PRESSURE
     Dosage: VARIOUS DOSES (50MG AND 100MG)
     Route: 048
     Dates: start: 19970101, end: 20060101
  2. ATENOLOL [Suspect]
     Route: 048
     Dates: start: 20060101
  3. BENDROFLUMETHIAZIDE [Concomitant]
     Indication: DRUG USE FOR UNKNOWN INDICATION
     Dosage: 2.5MG
     Route: 065
  4. CRESTOR [Concomitant]
     Indication: DRUG USE FOR UNKNOWN INDICATION
     Dosage: 20UG
     Route: 065

REACTIONS (17)
  - ALOPECIA [None]
  - ARTHRITIS [None]
  - BLOOD PRESSURE ABNORMAL [None]
  - BLOOD PRESSURE INCREASED [None]
  - DIZZINESS [None]
  - FATIGUE [None]
  - HEADACHE [None]
  - HYPOAESTHESIA [None]
  - LOSS OF CONSCIOUSNESS [None]
  - MALAISE [None]
  - MUSCLE SPASMS [None]
  - NEURALGIA [None]
  - PAIN IN EXTREMITY [None]
  - PAIN IN JAW [None]
  - SKELETAL INJURY [None]
  - TENDONITIS [None]
  - VERTEBRAL INJURY [None]
